FAERS Safety Report 13243393 (Version 1)
Quarter: 2017Q1

REPORT INFORMATION
  Report Type: Spontaneous
  Country: US (occurrence: US)
  Receive Date: 20170216
  Receipt Date: 20170216
  Transmission Date: 20170428
  Serious: No
  Sender: FDA-Public Use
  Company Number: US-APOTEX-2016AP012293

PATIENT
  Age: 49 Year
  Sex: Female

DRUGS (4)
  1. ACARBOSE. [Suspect]
     Active Substance: ACARBOSE
     Indication: HYPERINSULINAEMIC HYPOGLYCAEMIA
     Dosage: 25 MG, BEFORE MEALS
     Route: 065
  2. VERAPAMIL HYDROCHLORIDE. [Suspect]
     Active Substance: VERAPAMIL HYDROCHLORIDE
     Indication: HYPERINSULINAEMIC HYPOGLYCAEMIA
     Route: 065
  3. NIFEDIPINE. [Suspect]
     Active Substance: NIFEDIPINE
     Indication: HYPERINSULINAEMIC HYPOGLYCAEMIA
     Dosage: 10 MG, DAILY
     Route: 065
  4. DIAZOXIDE [Suspect]
     Active Substance: DIAZOXIDE
     Indication: HYPERINSULINAEMIC HYPOGLYCAEMIA
     Dosage: 3 MG/KG, DAILY
     Route: 065

REACTIONS (5)
  - Drug ineffective for unapproved indication [Unknown]
  - Dizziness [Unknown]
  - Nausea [Unknown]
  - Body mass index increased [Unknown]
  - Off label use [Unknown]
